FAERS Safety Report 7354625-4 (Version None)
Quarter: 2011Q1

REPORT INFORMATION
  Report Type: 
  Country: None (occurrence: None)
  Receive Date: 20110316
  Receipt Date: 20110311
  Transmission Date: 20110831
  Serious: Yes (Other)
  Sender: FDA-Public Use
  Company Number: US-PFIZER INC-2011054513

PATIENT
  Sex: Female

DRUGS (2)
  1. LYRICA [Suspect]
     Indication: NEURALGIA
     Dosage: 50 MG, 2X/DAY
     Route: 048
     Dates: start: 20100901
  2. LYRICA [Suspect]
     Indication: FIBROMYALGIA

REACTIONS (11)
  - INFLUENZA [None]
  - LOSS OF CONSCIOUSNESS [None]
  - FEELING ABNORMAL [None]
  - DIZZINESS [None]
  - PYREXIA [None]
  - DRUG INEFFECTIVE [None]
  - VOMITING [None]
  - NAUSEA [None]
  - SOMNOLENCE [None]
  - BRADYPHRENIA [None]
  - COMA [None]
